FAERS Safety Report 14830178 (Version 3)
Quarter: 2018Q4

REPORT INFORMATION
  Report Type: Spontaneous
  Country: DE (occurrence: DE)
  Receive Date: 20180430
  Receipt Date: 20181127
  Transmission Date: 20190204
  Serious: Yes (Hospitalization)
  Sender: FDA-Public Use
  Company Number: DE-ALLERGAN-1822944US

PATIENT
  Age: 45 Year
  Sex: Male

DRUGS (2)
  1. AMLODIPIN [Concomitant]
     Active Substance: AMLODIPINE BESYLATE
     Dosage: 10 MG, QD
     Route: 065
  2. ESCITALOPRAM OXALATE - BP [Suspect]
     Active Substance: ESCITALOPRAM OXALATE
     Indication: ANXIETY DISORDER
     Dosage: 10 MG, QD
     Route: 065
     Dates: start: 20130601, end: 20180417

REACTIONS (9)
  - Psychomotor hyperactivity [Unknown]
  - Tension headache [Unknown]
  - Feeling abnormal [Unknown]
  - Stress [Unknown]
  - Malaise [Unknown]
  - Discomfort [Not Recovered/Not Resolved]
  - Nervousness [Unknown]
  - Anxiety disorder [Unknown]
  - Agitation [Unknown]
